FAERS Safety Report 7755518-0 (Version None)
Quarter: 2011Q3

REPORT INFORMATION
  Report Type: 
  Country: None (occurrence: None)
  Receive Date: 20110914
  Receipt Date: 20110831
  Transmission Date: 20111222
  Serious: Yes (Other)
  Sender: FDA-Public Use
  Company Number: TPA2011A05396

PATIENT
  Age: 46 Year
  Sex: Female

DRUGS (1)
  1. DEXILANT [Suspect]
     Indication: GASTROOESOPHAGEAL REFLUX DISEASE
     Dosage: 60 MG, 1 IN 1 D, PER ORAL
     Route: 048

REACTIONS (3)
  - VOMITING [None]
  - CONDITION AGGRAVATED [None]
  - GALLBLADDER DISORDER [None]
